FAERS Safety Report 9134072 (Version 5)
Quarter: 2013Q3

REPORT INFORMATION
  Report Type: Spontaneous
  Country: US (occurrence: US)
  Receive Date: 20130304
  Receipt Date: 20130717
  Transmission Date: 20140515
  Serious: Yes (Hospitalization)
  Sender: FDA-Public Use
  Company Number: US-BIOGENIDEC-2013BI019710

PATIENT
  Age: 60 Year
  Sex: Female
  Weight: 64 kg

DRUGS (23)
  1. AVONEX [Suspect]
     Indication: MULTIPLE SCLEROSIS
     Route: 030
     Dates: start: 20000114
  2. AVONEX [Suspect]
     Indication: MULTIPLE SCLEROSIS
     Route: 030
     Dates: start: 20000201
  3. AVONEX [Suspect]
     Indication: MULTIPLE SCLEROSIS
     Route: 030
     Dates: start: 200101, end: 20130220
  4. AMANTADINE [Concomitant]
  5. GABAPENTIN [Concomitant]
     Route: 048
  6. HYDROXYCHLOROQUINE [Concomitant]
     Route: 048
  7. REMICADE [Concomitant]
  8. METFORMIN [Concomitant]
  9. PREDNISONE [Concomitant]
  10. PREDNISONE [Concomitant]
  11. LYRICA [Concomitant]
  12. LYRICA [Concomitant]
  13. ZOCOR [Concomitant]
  14. IRON [Concomitant]
  15. RESTORIL [Concomitant]
  16. EFFEXOR [Concomitant]
  17. POTASSIUM SUPPLEMENT [Concomitant]
  18. PLAQUENIL [Concomitant]
  19. AMLODIPINE [Concomitant]
  20. SIMVASTATIN [Concomitant]
  21. GABAPENTIN [Concomitant]
  22. FLEXERIL [Concomitant]
  23. TEMAZEPAM [Concomitant]

REACTIONS (9)
  - Septic shock [Recovered/Resolved]
  - Acute respiratory failure [Recovered/Resolved]
  - Encephalopathy [Recovered/Resolved]
  - Renal failure acute [Recovered/Resolved]
  - Hypokalaemia [Recovered/Resolved]
  - Hypernatraemia [Recovered/Resolved]
  - Adrenal insufficiency [Recovered/Resolved]
  - Anaemia [Recovered/Resolved]
  - Muscular weakness [Unknown]
